FAERS Safety Report 4788412-8 (Version None)
Quarter: 2005Q3

REPORT INFORMATION
  Report Type: 
  Country: None (occurrence: None)
  Receive Date: 20050920
  Receipt Date: 20040824
  Transmission Date: 20060218
  Serious: No
  Sender: FDA-Public Use
  Company Number: S04-USA-05762-01

PATIENT
  Sex: Female

DRUGS (7)
  1. CELEXA [Suspect]
     Indication: DEPRESSION
     Dates: end: 20040701
  2. COUMADIN [Concomitant]
  3. INSULIN [Concomitant]
  4. COZAAR [Concomitant]
  5. ZOCOR [Concomitant]
  6. TOPROL-XL [Concomitant]
  7. ASPIRIN [Concomitant]

REACTIONS (1)
  - URINARY RETENTION [None]
